FAERS Safety Report 5688257-0 (Version None)
Quarter: 2008Q1

REPORT INFORMATION
  Report Type: 
  Country: None (occurrence: None)
  Receive Date: 20080328
  Receipt Date: 20080328
  Transmission Date: 20080703
  Serious: Yes (Life-Threatening)
  Sender: FDA-Public Use
  Company Number: None

PATIENT
  Age: 9 Year
  Sex: Male
  Weight: 32.659 kg

DRUGS (2)
  1. SINGULAIR [Suspect]
     Indication: FOOD ALLERGY
     Dosage: 5MG  1/DAY  PO
     Route: 048
     Dates: start: 20070101, end: 20080326
  2. SINGULAIR [Suspect]
     Indication: SINUS DISORDER
     Dosage: 5MG  1/DAY  PO
     Route: 048
     Dates: start: 20070101, end: 20080326

REACTIONS (2)
  - ANGER [None]
  - SUICIDAL IDEATION [None]
